FAERS Safety Report 22623361 (Version 2)
Quarter: 2023Q2

REPORT INFORMATION
  Report Type: Spontaneous
  Country: NL (occurrence: NL)
  Receive Date: 20230621
  Receipt Date: 20230630
  Transmission Date: 20230722
  Serious: No
  Sender: FDA-Public Use
  Company Number: NL-UCBSA-2023030868

PATIENT
  Age: 81 Year
  Sex: Male

DRUGS (1)
  1. NEUPRO [Suspect]
     Active Substance: ROTIGOTINE
     Indication: Product used for unknown indication
     Dosage: 4 MILLIGRAM, ONCE DAILY (QD)
     Route: 062

REACTIONS (4)
  - Withdrawal syndrome [Unknown]
  - Product adhesion issue [Unknown]
  - Product dose omission issue [Unknown]
  - Incorrect dose administered [Unknown]
